FAERS Safety Report 24607293 (Version 2)
Quarter: 2024Q4

REPORT INFORMATION
  Report Type: Spontaneous
  Country: US (occurrence: US)
  Receive Date: 20241112
  Receipt Date: 20241211
  Transmission Date: 20250115
  Serious: No
  Sender: ABBVIE
  Company Number: US-ABBVIE-5990769

PATIENT
  Age: 83 Year
  Sex: Female

DRUGS (3)
  1. ESTRADIOL [Suspect]
     Active Substance: ESTRADIOL
     Indication: Prophylaxis urinary tract infection
     Dosage: TIME INTERVAL: 0.33333333 WEEKS: UNKNOWN?START DATE TEXT:2 AND A HALF YEARS AGO
     Route: 061
     Dates: end: 202411
  2. ESTRADIOL [Suspect]
     Active Substance: ESTRADIOL
     Indication: Urinary tract disorder prophylaxis
     Dosage: UNKNOWN
     Route: 061
     Dates: start: 202411
  3. ESTRADIOL [Suspect]
     Active Substance: ESTRADIOL
     Indication: Prophylaxis

REACTIONS (1)
  - Off label use [Unknown]
